FAERS Safety Report 25176965 (Version 2)
Quarter: 2025Q2

REPORT INFORMATION
  Report Type: Spontaneous
  Country: IN (occurrence: IN)
  Receive Date: 20250409
  Receipt Date: 20250521
  Transmission Date: 20250717
  Serious: Yes (Death, Hospitalization, Other)
  Sender: GLENMARK
  Company Number: IN-GLENMARK PHARMACEUTICALS-2025GMK099155

PATIENT
  Age: 77 Year
  Sex: Male

DRUGS (1)
  1. ABIRATERONE ACETATE [Suspect]
     Active Substance: ABIRATERONE ACETATE
     Indication: Hormone-dependent prostate cancer
     Route: 065

REACTIONS (4)
  - Prostate cancer metastatic [Fatal]
  - Asthenia [Fatal]
  - Decreased appetite [Fatal]
  - Disease progression [Fatal]

NARRATIVE: CASE EVENT DATE: 20241213
